FAERS Safety Report 8415880-2 (Version None)
Quarter: 2012Q2

REPORT INFORMATION
  Report Type: 
  Country: None (occurrence: None)
  Receive Date: 20120606
  Receipt Date: 20120528
  Transmission Date: 20120825
  Serious: Yes (Hospitalization)
  Sender: FDA-Public Use
  Company Number: JP-SANOFI-AVENTIS-2012SA026441

PATIENT
  Age: 46 Year
  Sex: Female
  Weight: 57 kg

DRUGS (10)
  1. OXALIPLATIN [Suspect]
     Indication: COLON CANCER
     Route: 041
     Dates: start: 20111206, end: 20111206
  2. ANTINEOPLASTIC AGENTS [Concomitant]
     Dates: start: 20111220, end: 20120501
  3. OXALIPLATIN [Suspect]
     Route: 041
     Dates: start: 20120501, end: 20120501
  4. FLUOROURACIL [Concomitant]
     Dates: start: 20111206, end: 20120501
  5. OXALIPLATIN [Suspect]
     Route: 041
     Dates: start: 20120124, end: 20120124
  6. LEUCOVORIN CALCIUM [Concomitant]
     Route: 042
     Dates: start: 20111206, end: 20120501
  7. DEXAMETHASONE [Concomitant]
     Dates: start: 20111206, end: 20120501
  8. OXALIPLATIN [Suspect]
     Route: 041
     Dates: start: 20111220, end: 20111220
  9. OXALIPLATIN [Suspect]
     Route: 041
     Dates: start: 20120110, end: 20120110
  10. RED BLOOD CELLS, CONCENTRATED [Concomitant]
     Dates: start: 20111209, end: 20120206

REACTIONS (4)
  - WHITE BLOOD CELL COUNT DECREASED [None]
  - SPLENOMEGALY [None]
  - NEUTROPHIL COUNT DECREASED [None]
  - PLATELET COUNT DECREASED [None]
